FAERS Safety Report 5597122-9 (Version None)
Quarter: 2008Q1

REPORT INFORMATION
  Report Type: 
  Country: None (occurrence: None)
  Receive Date: 20080121
  Receipt Date: 20080111
  Transmission Date: 20080703
  Serious: Yes (Hospitalization, Other)
  Sender: FDA-Public Use
  Company Number: PHBS2008HR00814

PATIENT
  Age: 53 Year
  Sex: Female
  Weight: 83 kg

DRUGS (1)
  1. DICLOFENAC [Suspect]
     Indication: MYALGIA
     Route: 048

REACTIONS (13)
  - BLOOD ALBUMIN DECREASED [None]
  - BLOOD CREATININE INCREASED [None]
  - GENERALISED OEDEMA [None]
  - NEPHROTIC SYNDROME [None]
  - PALLOR [None]
  - PROTEIN TOTAL DECREASED [None]
  - PROTEINURIA [None]
  - RED BLOOD CELL SEDIMENTATION RATE INCREASED [None]
  - RED BLOOD CELLS URINE POSITIVE [None]
  - RENAL FAILURE ACUTE [None]
  - RENAL TUBULAR NECROSIS [None]
  - RETINOPATHY HYPERTENSIVE [None]
  - WHITE BLOOD CELLS URINE POSITIVE [None]
